FAERS Safety Report 6228975-9 (Version None)
Quarter: 2009Q2

REPORT INFORMATION
  Report Type: 
  Country: None (occurrence: None)
  Receive Date: 20090611
  Receipt Date: 20090611
  Transmission Date: 20091009
  Serious: Yes (Other)
  Sender: FDA-Public Use
  Company Number: None

PATIENT
  Sex: Male
  Weight: 80.6 kg

DRUGS (1)
  1. LEVETIRACETAM [Suspect]
     Indication: EPILEPSY
     Dosage: 500MG 3 QAM 3 QHS PO
     Route: 048
     Dates: start: 20081101

REACTIONS (3)
  - AFFECTIVE DISORDER [None]
  - CONFUSIONAL STATE [None]
  - CONVULSION [None]
